FAERS Safety Report 6159664-7 (Version None)
Quarter: 2009Q2

REPORT INFORMATION
  Report Type: 
  Country: None (occurrence: None)
  Receive Date: 20090415
  Receipt Date: 20090331
  Transmission Date: 20091009
  Serious: Yes (Disabling)
  Sender: FDA-Public Use
  Company Number: 090318-0000542

PATIENT
  Sex: Male

DRUGS (3)
  1. INDOCIN [Suspect]
     Indication: PATENT DUCTUS ARTERIOSUS
     Dosage: 0.2 MG/KG;QD;IVDRP ; 0.1 MG/KG;QD;IVDRP
     Route: 041
  2. INDOCIN [Suspect]
     Indication: PATENT DUCTUS ARTERIOSUS
     Dosage: 0.2 MG/KG;QD;IVDRP ; 0.1 MG/KG;QD;IVDRP
     Route: 041
  3. FUROSEMIDE [Suspect]
     Indication: DRUG USE FOR UNKNOWN INDICATION
     Dosage: 0.5 MG/KG;QD;IV
     Route: 042

REACTIONS (11)
  - ATHETOSIS [None]
  - BRAIN STEM AUDITORY EVOKED RESPONSE ABNORMAL [None]
  - CYANOSIS NEONATAL [None]
  - DYSTONIA [None]
  - HYPOALBUMINAEMIA [None]
  - HYPOGLYCAEMIA [None]
  - HYPOPROTEINAEMIA [None]
  - KERNICTERUS [None]
  - LARYNGOMALACIA [None]
  - NUCLEAR MAGNETIC RESONANCE IMAGING BRAIN ABNORMAL [None]
  - PATENT DUCTUS ARTERIOSUS REPAIR [None]
